FAERS Safety Report 8940913 (Version 2)
Quarter: 2013Q2

REPORT INFORMATION
  Report Type: Spontaneous
  Country: US (occurrence: US)
  Receive Date: 20121203
  Receipt Date: 20130502
  Transmission Date: 20140414
  Serious: No
  Sender: FDA-Public Use
  Company Number: US-B.I. PHARMACEUTICALS,INC./RIDGEFIELD-2012-BI-01977BP

PATIENT
  Age: 56 Year
  Sex: Male
  Weight: 67 kg

DRUGS (2)
  1. SPIRIVA [Suspect]
     Indication: BRONCHITIS CHRONIC
     Dosage: 18 MCG
     Route: 055
     Dates: start: 2010
  2. SPIRIVA [Suspect]
     Route: 048
     Dates: start: 20121129, end: 20121129

REACTIONS (2)
  - Hepatitis [Not Recovered/Not Resolved]
  - Incorrect route of drug administration [Recovered/Resolved]
